FAERS Safety Report 17678340 (Version 2)
Quarter: 2020Q2

REPORT INFORMATION
  Report Type: Spontaneous
  Country: US (occurrence: US)
  Receive Date: 20200417
  Receipt Date: 20200429
  Transmission Date: 20200714
  Serious: No
  Sender: FDA-Public Use
  Company Number: US-MTPC-MTDA2020-0050101

PATIENT
  Sex: Female

DRUGS (2)
  1. RADICAVA [Suspect]
     Active Substance: EDARAVONE
     Dosage: 60 MG OVER 60 MIN, QD 10 DAYS OUT OF 14 DAY PERIODS, FOLLOWED BY A 14-DAY DRUG FREE PERIODS
     Route: 042
     Dates: end: 202002
  2. RADICAVA [Suspect]
     Active Substance: EDARAVONE
     Indication: AMYOTROPHIC LATERAL SCLEROSIS
     Dosage: 60 MG OVER 60 MIN, QD 14 DAYS FOLLOWED BY A 14-DAY DRUG FREE PERIOD
     Route: 042
     Dates: start: 201910

REACTIONS (2)
  - Drug ineffective [Unknown]
  - Condition aggravated [Unknown]
